FAERS Safety Report 11246395 (Version 2)
Quarter: 2015Q3

REPORT INFORMATION
  Report Type: Spontaneous
  Country: US (occurrence: None)
  Receive Date: 20150616
  Receipt Date: 20150818
  Transmission Date: 20151125
  Serious: Yes (Death, Hospitalization)
  Sender: FDA-Public Use
  Company Number: USW201502-000037

PATIENT
  Age: 78 Year
  Sex: Male
  Weight: 81.64 kg

DRUGS (4)
  1. AZILECT (RASAGILINE) [Concomitant]
  2. SINEMET [Concomitant]
     Active Substance: CARBIDOPA\LEVODOPA
  3. APOKYN [Suspect]
     Active Substance: APOMORPHINE HYDROCHLORIDE
     Indication: PARKINSON^S DISEASE
     Route: 058
     Dates: start: 2014, end: 20150207
  4. NEUPRO PATCH (ROTIGOTINE) [Concomitant]

REACTIONS (2)
  - Parkinsonism [None]
  - Drug ineffective [None]

NARRATIVE: CASE EVENT DATE: 20150207
